FAERS Safety Report 21197718 (Version 2)
Quarter: 2022Q3

REPORT INFORMATION
  Report Type: Spontaneous
  Country: US (occurrence: US)
  Receive Date: 20220810
  Receipt Date: 20220818
  Transmission Date: 20221027
  Serious: No
  Sender: FDA-Public Use
  Company Number: US-SANOFI-01225575

PATIENT
  Age: 73 Year
  Sex: Female

DRUGS (1)
  1. AMBIEN [Suspect]
     Active Substance: ZOLPIDEM TARTRATE
     Indication: Insomnia
     Dosage: 12.5 MG, QD
     Dates: start: 20220523, end: 20220731

REACTIONS (9)
  - Photosensitivity reaction [Unknown]
  - Mobility decreased [Unknown]
  - Insomnia [Unknown]
  - Sleep disorder [Unknown]
  - Concussion [Unknown]
  - Thinking abnormal [Unknown]
  - Dizziness [Unknown]
  - Headache [Unknown]
  - Wrong technique in product usage process [Unknown]

NARRATIVE: CASE EVENT DATE: 20220731
